FAERS Safety Report 7805781 (Version 16)
Quarter: 2012Q4

REPORT INFORMATION
  Report Type: Report from Study
  Country: JP (occurrence: JP)
  Receive Date: 20110209
  Receipt Date: 20121101
  Transmission Date: 20130627
  Serious: Yes (Hospitalization, Other)
  Sender: FDA-Public Use
  Company Number: PHHO2011JP02399

PATIENT
  Age: 78 Year
  Sex: Male
  Weight: 60 kg

DRUGS (55)
  1. PLETAAL [Concomitant]
     Dosage: 100 mg, daily
     Route: 048
     Dates: start: 20110420, end: 20121006
  2. PLETAAL [Concomitant]
     Dosage: 100 mg, daily
     Route: 048
     Dates: start: 20121013
  3. XARELTO [Concomitant]
     Indication: CEREBRAL ARTERY EMBOLISM
     Dosage: 10 mg, daily
     Route: 048
     Dates: start: 20120720, end: 20121006
  4. XARELTO [Concomitant]
     Dosage: 10 mg, daily
     Route: 048
     Dates: start: 20121013
  5. ALPHAGAN [Concomitant]
     Indication: GLAUCOMA
     Dosage: 2 DF, UNK
     Route: 047
     Dates: start: 20120903
  6. KALGUT [Concomitant]
     Indication: FLUID REPLACEMENT
     Dosage: 20 mg, UNK
     Route: 048
     Dates: start: 20120801
  7. MUCOSTA [Concomitant]
     Indication: DECREASED APPETITE
     Dosage: 200 mg, daily
     Route: 048
     Dates: start: 20120719, end: 20120914
  8. MUCOSTA [Concomitant]
     Dosage: 200 mg, daily
     Route: 048
     Dates: start: 20120925, end: 20121005
  9. BLINDED ALISKIREN [Suspect]
     Indication: CARDIAC FAILURE
     Dosage: Code not broken
     Route: 048
     Dates: start: 20110127, end: 20110210
  10. BLINDED ENALAPRIL [Suspect]
     Indication: CARDIAC FAILURE
     Dosage: Code not broken
     Route: 048
     Dates: start: 20110127, end: 20110210
  11. BLINDED NO TREATMENT RECEIVED [Suspect]
     Indication: CARDIAC FAILURE
     Dosage: Code not broken
     Route: 048
     Dates: start: 20110127, end: 20110210
  12. BLINDED ALISKIREN [Suspect]
     Dosage: Code not broken
     Route: 048
     Dates: start: 20110630, end: 20120801
  13. BLINDED ENALAPRIL [Suspect]
     Dosage: Code not broken
     Route: 048
     Dates: start: 20110630, end: 20120801
  14. BLINDED NO TREATMENT RECEIVED [Suspect]
     Dosage: Code not broken
     Route: 048
     Dates: start: 20110630, end: 20120801
  15. ALISKIREN [Suspect]
     Indication: CARDIAC FAILURE
     Dosage: 150 mg, QD
     Route: 048
     Dates: start: 20110107, end: 20110210
  16. ALISKIREN [Suspect]
     Dosage: 150 mg, QD
     Route: 048
     Dates: start: 20110630, end: 20120801
  17. COMPARATOR ENALAPRIL [Suspect]
     Indication: CARDIAC FAILURE
     Dosage: 10 mg, QD
     Route: 048
     Dates: start: 20101112, end: 20101209
  18. COMPARATOR ENALAPRIL [Suspect]
     Dosage: 20 mg, QD
     Route: 048
     Dates: start: 20101210, end: 20110105
  19. COMPARATOR ENALAPRIL [Suspect]
     Dosage: 10 mg, QD
     Route: 048
     Dates: start: 20110106, end: 20110210
  20. COMPARATOR ENALAPRIL [Suspect]
     Dosage: UNK
     Route: 048
     Dates: start: 20110630, end: 20120801
  21. WARFARIN [Suspect]
     Indication: CEREBRAL ARTERY EMBOLISM
     Dosage: 1.75 mg, daily
     Route: 048
     Dates: start: 20100128, end: 20110129
  22. WARFARIN [Suspect]
     Dosage: 0.75 mg, daily
     Route: 048
     Dates: start: 20110130
  23. WARFARIN [Suspect]
     Dosage: 0.75 mg, daily
     Route: 048
     Dates: start: 20110214, end: 20110302
  24. WARFARIN [Suspect]
     Dosage: 2 mg, daily
     Route: 048
     Dates: start: 20110303
  25. WARFARIN [Suspect]
     Dosage: 1 mg, daily
     Route: 048
     Dates: start: 20110329
  26. LASIX [Concomitant]
     Indication: CARDIAC FAILURE CHRONIC
     Dosage: 40 mg, daily
     Route: 048
     Dates: start: 20100501
  27. LASIX [Concomitant]
     Dosage: 20 mg, daily
     Route: 048
  28. EPLERENONE [Concomitant]
     Indication: CARDIAC FAILURE CHRONIC
     Dosage: 100 mg, daily
     Route: 048
     Dates: start: 20100617
  29. EPLERENONE [Concomitant]
     Dosage: 50 mg, daily
     Route: 048
     Dates: start: 20110317
  30. EPLERENONE [Concomitant]
     Dosage: 25 mg, daily
     Dates: start: 20120727
  31. ARTIST [Concomitant]
     Indication: CARDIAC FAILURE CHRONIC
     Dosage: 5 mg, daily
     Route: 048
     Dates: start: 20100210
  32. THYRADIN [Concomitant]
     Indication: HYPOTHYROIDISM
     Dosage: 100 ug, UNK
     Route: 048
     Dates: start: 20100506
  33. THYRADIN [Concomitant]
     Dosage: 150 ug, daily
     Dates: start: 20120715, end: 20120914
  34. THYRADIN [Concomitant]
     Dosage: 150 ug, daily
     Dates: start: 20120925
  35. TAKEPRON [Concomitant]
     Indication: GASTRITIS PROPHYLAXIS
     Dosage: 15 mg daily
     Route: 048
     Dates: start: 20080205, end: 20120913
  36. TAKEPRON [Concomitant]
     Dosage: 15 mg, daily
     Route: 048
     Dates: start: 20120926
  37. CEPHADOL [Concomitant]
     Indication: DIZZINESS
     Dosage: 50 mg daily
     Route: 048
     Dates: start: 20090409, end: 20120914
  38. CEPHADOL [Concomitant]
     Dosage: 50 mg, daily
     Route: 048
     Dates: start: 20120925, end: 20121005
  39. CEPHADOL [Concomitant]
     Dosage: 50 mg, daily
     Route: 048
     Dates: start: 20121016
  40. SENNOSIDE [Concomitant]
     Indication: CONSTIPATION
     Dosage: 36 mg, UNK
     Route: 048
     Dates: start: 20080529, end: 20120914
  41. SOLANAX [Concomitant]
     Indication: INSOMNIA
     Dosage: 0.4 mg, daily
     Route: 048
     Dates: start: 20091119
  42. SOLANAX [Concomitant]
     Dosage: 0.4 mg, daily
     Route: 048
     Dates: start: 20110219, end: 20120914
  43. AZOPT [Concomitant]
     Indication: GLAUCOMA
     Dosage: 3 DF, UNK
     Route: 031
     Dates: start: 20100202
  44. TRAVATANZ [Concomitant]
     Indication: GLAUCOMA
     Dosage: 1 DF, UNK
     Route: 031
     Dates: start: 20100513
  45. ANCARON [Concomitant]
     Indication: VENTRICULAR FIBRILLATION
     Dosage: 200 mg, UNK
     Route: 048
     Dates: start: 20080206
  46. DIART [Concomitant]
     Indication: CARDIAC FAILURE CHRONIC
     Dosage: 30 mg, daily
     Route: 048
     Dates: start: 20120210, end: 20120723
  47. DIART [Concomitant]
     Dosage: 15 mg, daily
     Route: 048
     Dates: start: 20120725
  48. ARICEPT [Concomitant]
     Indication: QUALITY OF LIFE DECREASED
     Dosage: 5 mg, daily
     Route: 048
     Dates: start: 20120224, end: 20120914
  49. ARICEPT [Concomitant]
     Indication: CEREBROVASCULAR DISORDER
     Dosage: 5 mg, daily
     Route: 048
     Dates: start: 20120926, end: 20121005
  50. DETANTOL [Concomitant]
     Dosage: UNK
     Route: 047
     Dates: start: 20110825
  51. DABIGATRAN ETEXILATE [Concomitant]
     Indication: CEREBRAL ARTERY EMBOLISM
     Dosage: 150 mg, UNK
     Route: 048
     Dates: start: 20120524
  52. HEPARIN CALCIUM [Concomitant]
  53. NAUZELIN [Concomitant]
     Indication: DECREASED APPETITE
     Dosage: 20 mg, daily
     Route: 048
     Dates: start: 20120719, end: 20120914
  54. NAUZELIN [Concomitant]
     Dosage: 20 mg, daily
     Route: 048
     Dates: start: 20120925, end: 20121005
  55. PLETAAL [Concomitant]
     Indication: CEREBRAL ARTERY EMBOLISM
     Dosage: 100 mg, daily
     Route: 048
     Dates: start: 20100210

REACTIONS (15)
  - Arthralgia [Unknown]
  - Headache [Unknown]
  - Renal failure acute [Recovered/Resolved]
  - Blood urea increased [Recovered/Resolved]
  - Blood creatinine increased [Recovered/Resolved]
  - Renal impairment [Unknown]
  - Pyelonephritis acute [Recovered/Resolved]
  - Streptococcal infection [Unknown]
  - Dysuria [Recovered/Resolved]
  - Abdominal pain [Recovered/Resolved]
  - Urinary tract infection [Recovered/Resolved]
  - Chills [Recovered/Resolved]
  - Asthenia [Recovered/Resolved]
  - Cholangitis [Recovered/Resolved]
  - Decreased appetite [Recovered/Resolved]
